FAERS Safety Report 18074516 (Version 1)
Quarter: 2020Q3

REPORT INFORMATION
  Report Type: Spontaneous
  Country: US (occurrence: US)
  Receive Date: 20200727
  Receipt Date: 20200727
  Transmission Date: 20201103
  Serious: Yes (Other)
  Sender: FDA-Public Use
  Company Number: US-ABBVIE-19K-163-2945739-00

PATIENT
  Sex: Female

DRUGS (1)
  1. SYNTHROID [Suspect]
     Active Substance: LEVOTHYROXINE SODIUM
     Indication: PRODUCT USED FOR UNKNOWN INDICATION
     Route: 048
     Dates: start: 1980

REACTIONS (5)
  - Dizziness [Unknown]
  - Cardiac valve disease [Unknown]
  - Maternal exposure during pregnancy [Unknown]
  - Autoimmune thyroiditis [Unknown]
  - Myocardial infarction [Unknown]
